FAERS Safety Report 19323545 (Version 19)
Quarter: 2024Q3

REPORT INFORMATION
  Report Type: Spontaneous
  Country: US (occurrence: US)
  Receive Date: 20210528
  Receipt Date: 20240909
  Transmission Date: 20241016
  Serious: Yes (Hospitalization, Other)
  Sender: RANBAXY
  Company Number: US-SUN PHARMACEUTICAL INDUSTRIES LTD-2021R1-298347

PATIENT
  Sex: Female
  Weight: 62.585 kg

DRUGS (9)
  1. EPOPROSTENOL [Suspect]
     Active Substance: EPOPROSTENOL
     Indication: Pulmonary arterial hypertension
     Dosage: 30 NG/KG/MIN, CONTINUOUS
     Route: 042
     Dates: start: 20210323
  2. EPOPROSTENOL [Suspect]
     Active Substance: EPOPROSTENOL
     Indication: Pulmonary arterial hypertension
     Dosage: 30 NG/KG/MIN, CONTINUOUS
     Route: 042
     Dates: start: 20210323
  3. EPOPROSTENOL [Suspect]
     Active Substance: EPOPROSTENOL
     Dosage: 30 NG/KG/MIN, CONTINUOUS
     Route: 042
     Dates: start: 20210323
  4. EPOPROSTENOL [Suspect]
     Active Substance: EPOPROSTENOL
     Indication: Pulmonary arterial hypertension
     Dosage: 30 NG/KG/MIN CONTINUOUS
     Route: 042
     Dates: start: 20210323
  5. EPOPROSTENOL [Suspect]
     Active Substance: EPOPROSTENOL
     Dosage: 30 NG/KG/MIN CONTINUOUS
     Route: 042
     Dates: start: 20210323
  6. EPOPROSTENOL [Suspect]
     Active Substance: EPOPROSTENOL
     Dosage: 30 NG/KG/MIN CONTINUOUS
     Route: 042
     Dates: start: 20210323
  7. EPOPROSTENOL [Suspect]
     Active Substance: EPOPROSTENOL
     Dosage: 30 NG/KG/MIN CONTINUOUS
     Route: 042
     Dates: start: 20210323
  8. EPOPROSTENOL [Suspect]
     Active Substance: EPOPROSTENOL
     Dosage: 30 NG/KG/MIN CONTINUOUS
     Route: 042
     Dates: start: 20210323
  9. EPOPROSTENOL [Suspect]
     Active Substance: EPOPROSTENOL
     Dosage: 30 NG/KG/MIN CONTINUOUS
     Route: 042
     Dates: start: 20210323

REACTIONS (29)
  - Complication associated with device [Unknown]
  - Dizziness [Unknown]
  - Dyspnoea [Unknown]
  - Flushing [Unknown]
  - Venous occlusion [Unknown]
  - Vomiting [Unknown]
  - Bell^s palsy [Unknown]
  - Central venous pressure increased [Unknown]
  - Epistaxis [Unknown]
  - Facial paralysis [Unknown]
  - Pharyngitis [Unknown]
  - Upper respiratory tract infection [Unknown]
  - Viral infection [Unknown]
  - Heart rate increased [Recovering/Resolving]
  - Pain in jaw [Recovering/Resolving]
  - Nausea [Recovering/Resolving]
  - Diarrhoea [Recovering/Resolving]
  - Chills [Recovering/Resolving]
  - Pain [Recovering/Resolving]
  - COVID-19 [Recovering/Resolving]
  - Lacrimation increased [Unknown]
  - Nasal oedema [Unknown]
  - Intraocular pressure increased [Unknown]
  - Injection site pain [Unknown]
  - Sensitive skin [Unknown]
  - Pruritus [Unknown]
  - Hyperhidrosis [Unknown]
  - Skin irritation [Unknown]
  - Temperature intolerance [Unknown]
